FAERS Safety Report 8454855-4 (Version None)
Quarter: 2012Q2

REPORT INFORMATION
  Report Type: 
  Country: None (occurrence: None)
  Receive Date: 20120621
  Receipt Date: 20120612
  Transmission Date: 20120825
  Serious: Yes (Hospitalization, Other)
  Sender: FDA-Public Use
  Company Number: AU-JNJFOC-20120310825

PATIENT
  Sex: Male

DRUGS (9)
  1. STELARA [Suspect]
     Route: 058
     Dates: start: 20110124, end: 20110124
  2. STELARA [Suspect]
     Route: 058
     Dates: start: 20100717, end: 20100717
  3. STELARA [Suspect]
     Dosage: WEEK 100, NEXT DOSE DUE ON 25-JUN-2012
     Route: 058
     Dates: start: 20120404, end: 20120404
  4. STELARA [Suspect]
     Route: 058
     Dates: start: 20110725, end: 20110725
  5. STELARA [Suspect]
     Route: 058
     Dates: start: 20120109, end: 20120109
  6. STELARA [Suspect]
     Route: 058
     Dates: start: 20101107, end: 20101107
  7. STELARA [Suspect]
     Indication: PSORIASIS
     Route: 058
     Dates: start: 20110419, end: 20110419
  8. STELARA [Suspect]
     Route: 058
     Dates: start: 20100814, end: 20100814
  9. STELARA [Suspect]
     Route: 058
     Dates: start: 20111017, end: 20111017

REACTIONS (4)
  - PSORIASIS [None]
  - LOCALISED INFECTION [None]
  - TOE AMPUTATION [None]
  - NEUROPATHY PERIPHERAL [None]
